FAERS Safety Report 13289517 (Version 1)
Quarter: 2017Q1

REPORT INFORMATION
  Report Type: Spontaneous
  Country: DE (occurrence: DE)
  Receive Date: 20170303
  Receipt Date: 20170303
  Transmission Date: 20170428
  Serious: Yes (Other)
  Sender: FDA-Public Use
  Company Number: DE-SUN PHARMACEUTICAL INDUSTRIES LTD-2017RR-134591

PATIENT
  Sex: Female
  Weight: 82 kg

DRUGS (8)
  1. HYGROTON [Concomitant]
     Active Substance: CHLORTHALIDONE
     Indication: HYPERTENSION
     Dosage: 25 MG, DAILY
     Route: 048
     Dates: start: 2015
  2. OSTEOTRIOL [Concomitant]
     Indication: HYPOPARATHYROIDISM
     Dosage: 0.5 ?G, DAILY
     Route: 048
     Dates: start: 2015
  3. EYTHYROX [Concomitant]
     Indication: THYROIDECTOMY
     Dosage: 88 ?G, DAILY
     Route: 048
     Dates: start: 2006
  4. CITALOPRAM [Suspect]
     Active Substance: CITALOPRAM HYDROBROMIDE
     Indication: DEPRESSION
     Dosage: 20 MG, UNK
     Route: 048
     Dates: start: 2015
  5. ASS 100 [Suspect]
     Active Substance: ASPIRIN
     Indication: HYPERTENSION
     Dosage: 100 MG, UNK
     Route: 048
     Dates: start: 2015
  6. DEKRISTOL [Concomitant]
     Active Substance: CHOLECALCIFEROL
     Indication: HYPOPARATHYROIDISM
     Dosage: 20000 IU, 1/WEEK
     Route: 048
     Dates: start: 2015
  7. RAMIPRIL. [Concomitant]
     Active Substance: RAMIPRIL
     Indication: HYPERTENSION
     Dosage: 5 MG, DAILY
     Route: 048
     Dates: start: 2015
  8. NORSPAN [Concomitant]
     Active Substance: BUPRENORPHINE
     Indication: VERTEBRAL FORAMINAL STENOSIS
     Dosage: UNK
     Route: 062
     Dates: start: 2016

REACTIONS (2)
  - Gastrointestinal haemorrhage [Recovered/Resolved]
  - Haematoma [Recovered/Resolved]

NARRATIVE: CASE EVENT DATE: 2015
